FAERS Safety Report 8390253-X (Version None)
Quarter: 2012Q2

REPORT INFORMATION
  Report Type: 
  Country: None (occurrence: None)
  Receive Date: 20120529
  Receipt Date: 20120523
  Transmission Date: 20120825
  Serious: Yes (Hospitalization, Other)
  Sender: FDA-Public Use
  Company Number: FR-PFIZER INC-2012126026

PATIENT
  Age: 49 Year
  Sex: Female

DRUGS (1)
  1. SULFASALAZINE [Suspect]
     Indication: ANKYLOSING SPONDYLITIS
     Dosage: UNK

REACTIONS (4)
  - DYSPNOEA [None]
  - PERICARDIAL EFFUSION [None]
  - LUNG INFECTION [None]
  - WEIGHT DECREASED [None]
